FAERS Safety Report 8529984-7 (Version None)
Quarter: 2012Q3

REPORT INFORMATION
  Report Type: 
  Country: None (occurrence: None)
  Receive Date: 20120723
  Receipt Date: 20110714
  Transmission Date: 20120928
  Serious: No
  Sender: FDA-Public Use
  Company Number: US-GLAXOSMITHKLINE-A0936844A

PATIENT
  Age: 57 Year
  Sex: Female

DRUGS (3)
  1. TRIAMTERENE AND HYDROCHLOROTHIAZIDE [Suspect]
     Indication: PRODUCT USED FOR UNKNOWN INDICATION
     Dosage: 37.5MG TWICE PER DAY
     Route: 048
  2. PREVACID [Concomitant]
  3. RESTASIS [Concomitant]

REACTIONS (1)
  - DRUG INEFFECTIVE [None]
